FAERS Safety Report 25779349 (Version 2)
Quarter: 2025Q3

REPORT INFORMATION
  Report Type: Spontaneous
  Country: CR (occurrence: CR)
  Receive Date: 20250909
  Receipt Date: 20250927
  Transmission Date: 20251020
  Serious: Yes (Death, Other)
  Sender: AMGEN
  Company Number: CR-AMGEN-CRISP2025174308

PATIENT
  Sex: Male

DRUGS (1)
  1. BLINCYTO [Suspect]
     Active Substance: BLINATUMOMAB
     Indication: B precursor type acute leukaemia
     Dosage: 28 MICROGRAM, QD (EVERY 28 DAYS) (STRENGTH: 35 MCG)
     Route: 040
     Dates: start: 20250801, end: 2025

REACTIONS (7)
  - Neuropathy peripheral [Unknown]
  - Death [Fatal]
  - Staphylococcal infection [Unknown]
  - Pyrexia [Unknown]
  - Drug ineffective [Unknown]
  - Myalgia [Unknown]
  - Disorientation [Unknown]

NARRATIVE: CASE EVENT DATE: 20250101
